FAERS Safety Report 9916011 (Version 1)
Quarter: 2014Q1

REPORT INFORMATION
  Report Type: Spontaneous
  Country: NL (occurrence: None)
  Receive Date: 20140219
  Receipt Date: 20140219
  Transmission Date: 20141002
  Serious: Yes (Hospitalization)
  Sender: FDA-Public Use
  Company Number: AUR-APL-2014-01824

PATIENT
  Age: 15 Year
  Sex: Female

DRUGS (3)
  1. RISPERIDONE (RISPERIDONE) [Suspect]
     Indication: AGITATION
     Route: 048
  2. HALOPERIDOL (HALOPERIDOL) (HALOPERIDOL) [Suspect]
     Indication: AGITATION
     Dosage: 0.75 MG (0.25 MG, 3 IN 1 D), INTRAVENOUS
     Route: 042
  3. PROMETHAZINE (PROMETHAZINE) [Suspect]
     Indication: INSOMNIA
     Route: 048

REACTIONS (6)
  - Dystonia [None]
  - Drug ineffective [None]
  - Tachycardia [None]
  - Depressed level of consciousness [None]
  - Cognitive disorder [None]
  - Neuroleptic malignant syndrome [None]
